FAERS Safety Report 4352592-9 (Version None)
Quarter: 2004Q2

REPORT INFORMATION
  Report Type: 
  Country: None (occurrence: None)
  Receive Date: 20040420
  Receipt Date: 20040106
  Transmission Date: 20050107
  Serious: No
  Sender: FDA-Public Use
  Company Number: 2004192856US

PATIENT
  Sex: Male

DRUGS (1)
  1. INSPRA [Suspect]
     Dosage: 25 MG, QD

REACTIONS (3)
  - DYSGEUSIA [None]
  - HEADACHE [None]
  - INCREASED APPETITE [None]
